FAERS Safety Report 6134569-6 (Version None)
Quarter: 2009Q1

REPORT INFORMATION
  Report Type: 
  Country: None (occurrence: None)
  Receive Date: 20090327
  Receipt Date: 20090324
  Transmission Date: 20090719
  Serious: Yes (Death, Hospitalization, Other)
  Sender: FDA-Public Use
  Company Number: TW-ASTRAZENECA-2009AP02125

PATIENT
  Age: 40 Year
  Sex: Female

DRUGS (3)
  1. SEROQUEL [Suspect]
     Indication: BIPOLAR DISORDER
     Route: 048
  2. SEROQUEL [Suspect]
     Route: 048
  3. DEPARKINE [Concomitant]
     Indication: AFFECTIVE DISORDER

REACTIONS (2)
  - ARRHYTHMIA [None]
  - NEUROLEPTIC MALIGNANT SYNDROME [None]
